FAERS Safety Report 17033762 (Version 4)
Quarter: 2020Q1

REPORT INFORMATION
  Report Type: Spontaneous
  Country: US (occurrence: US)
  Receive Date: 20191114
  Receipt Date: 20200114
  Transmission Date: 20200409
  Serious: No
  Sender: FDA-Public Use
  Company Number: US-009507513-1911USA004334

PATIENT
  Age: 31 Year
  Sex: Female
  Weight: 60.32 kg

DRUGS (8)
  1. IRON (UNSPECIFIED) [Concomitant]
     Active Substance: IRON
     Dosage: UNK
  2. NUVARING [Suspect]
     Active Substance: ETHINYL ESTRADIOL\ETONOGESTREL
     Indication: DYSMENORRHOEA
     Dosage: 1 RING, REPLACE MONTHLY
     Route: 067
     Dates: start: 20191109, end: 201912
  3. NUVARING [Suspect]
     Active Substance: ETHINYL ESTRADIOL\ETONOGESTREL
     Indication: CONTRACEPTION
     Dosage: USE 1 RING EVERY THREE WEEKS AS DIRECTED
     Route: 067
     Dates: start: 20190506, end: 2019
  4. NUVARING [Suspect]
     Active Substance: ETHINYL ESTRADIOL\ETONOGESTREL
     Indication: MENORRHAGIA
     Dosage: USE 1 RING EVERY THREE WEEKS AS DIRECTED
     Route: 067
     Dates: start: 20191025, end: 20191108
  5. CLEOCIN [Suspect]
     Active Substance: CLINDAMYCIN PHOSPHATE
     Indication: BACTERIAL VULVOVAGINITIS
     Dosage: UNK
     Route: 067
     Dates: start: 20190916, end: 20190918
  6. ONE-A-DAY WOMENS PRENATAL [Concomitant]
     Dosage: UNK
  7. CLEOCIN [Suspect]
     Active Substance: CLINDAMYCIN PHOSPHATE
     Dosage: THREE SUPPOSITORIES INSERTED VAGINALLY WITH APPLICATOR
     Dates: start: 20191104, end: 20191106
  8. PROBIOTICS (UNSPECIFIED) [Concomitant]
     Active Substance: PROBIOTICS NOS
     Indication: PROPHYLAXIS OF VAGINAL FLORA IMBALANCE
     Dosage: UNK
     Route: 048

REACTIONS (9)
  - Device breakage [Unknown]
  - Product use in unapproved indication [Unknown]
  - Bacterial vaginosis [Recovered/Resolved]
  - Bacterial vaginosis [Recovered/Resolved]
  - Bacterial vaginosis [Recovered/Resolved]
  - Bacterial vulvovaginitis [Recovered/Resolved]
  - Bacterial vulvovaginitis [Recovering/Resolving]
  - Inappropriate schedule of product administration [Unknown]
  - Chronic sinusitis [Not Recovered/Not Resolved]

NARRATIVE: CASE EVENT DATE: 2019
